FAERS Safety Report 5842176-5 (Version None)
Quarter: 2008Q3

REPORT INFORMATION
  Report Type: 
  Country: None (occurrence: None)
  Receive Date: 20080812
  Receipt Date: 20080730
  Transmission Date: 20090109
  Serious: Yes (Hospitalization, Other)
  Sender: FDA-Public Use
  Company Number: JP-ROCHE-554041

PATIENT
  Sex: Male

DRUGS (8)
  1. TAMIFLU [Suspect]
     Indication: INFLUENZA
     Route: 048
     Dates: start: 20080311, end: 20080311
  2. TAMIFLU [Suspect]
     Dosage: DOSE DECREASED.
     Route: 048
     Dates: start: 20080312, end: 20080312
  3. ZITHROMAX [Suspect]
     Indication: INFECTION
     Route: 048
     Dates: start: 20080211, end: 20080312
  4. HERBESSER R [Concomitant]
     Route: 048
     Dates: start: 19980101
  5. ASPIRIN [Concomitant]
     Route: 048
     Dates: start: 19980101
  6. ADOAIR [Concomitant]
     Dosage: ROUTE REPORTED AS: RESPIRATORY (INHALATION).
     Route: 055
     Dates: start: 20080307, end: 20080312
  7. UNIPHYL [Concomitant]
     Dosage: DRUG: UNIPHYL LA.
     Route: 048
     Dates: start: 20080307
  8. KIPRES [Concomitant]
     Dosage: FORM: ORAL FORMULATION (NOT OTHERWISE SPECIFIED).
     Route: 048
     Dates: start: 20080307

REACTIONS (3)
  - DEHYDRATION [None]
  - PNEUMONIA [None]
  - RHABDOMYOLYSIS [None]
